FAERS Safety Report 17714440 (Version 1)
Quarter: 2020Q2

REPORT INFORMATION
  Report Type: Spontaneous
  Country: US (occurrence: US)
  Receive Date: 20200427
  Receipt Date: 20200427
  Transmission Date: 20200714
  Serious: No
  Sender: FDA-Public Use
  Company Number: US-009507513-2004USA003411

PATIENT
  Age: 77 Year
  Sex: Female
  Weight: 66.7 kg

DRUGS (7)
  1. BRIDION [Suspect]
     Active Substance: SUGAMMADEX
     Indication: CATATONIA
  2. METHOHEXITAL [Concomitant]
     Active Substance: METHOHEXITAL
     Indication: ELECTROCONVULSIVE THERAPY
     Dosage: 70?100 MG
  3. METHOHEXITAL [Concomitant]
     Active Substance: METHOHEXITAL
     Indication: CATATONIA
  4. ROCURONIUM BROMIDE. [Concomitant]
     Active Substance: ROCURONIUM BROMIDE
     Indication: ELECTROCONVULSIVE THERAPY
     Dosage: (30 MG?70 MG
  5. ROCURONIUM BROMIDE. [Concomitant]
     Active Substance: ROCURONIUM BROMIDE
     Indication: CATATONIA
  6. BRIDION [Suspect]
     Active Substance: SUGAMMADEX
     Indication: NEUROMUSCULAR BLOCKADE REVERSAL
  7. BRIDION [Suspect]
     Active Substance: SUGAMMADEX
     Indication: ELECTROCONVULSIVE THERAPY
     Dosage: 200?400 MG OR 3?6 MG/KG

REACTIONS (1)
  - Off label use [Unknown]
